FAERS Safety Report 10141120 (Version 1)
Quarter: 2014Q2

REPORT INFORMATION
  Report Type: Spontaneous
  Country: US (occurrence: US)
  Receive Date: 20140429
  Receipt Date: 20140429
  Transmission Date: 20141212
  Serious: Yes (Other)
  Sender: FDA-Public Use
  Company Number: US-ELI_LILLY_AND_COMPANY-US201404006829

PATIENT
  Sex: Male

DRUGS (19)
  1. HUMULIN NPH [Suspect]
     Indication: TYPE 1 DIABETES MELLITUS
     Dosage: 30 U, EACH MORNING
     Route: 065
  2. HUMULIN NPH [Suspect]
     Indication: TYPE 2 DIABETES MELLITUS
     Dosage: 20 U, EACH EVENING
     Route: 065
  3. HUMULIN NPH [Suspect]
     Dosage: UNK UNK, UNKNOWN
     Route: 065
  4. HUMULIN NPH [Suspect]
     Indication: TYPE 1 DIABETES MELLITUS
     Dosage: 20 U, EACH MORNING
     Route: 065
     Dates: start: 20140413
  5. HUMULIN NPH [Suspect]
     Indication: TYPE 2 DIABETES MELLITUS
     Dosage: 10 U, EACH EVENING
     Route: 065
     Dates: start: 20140413
  6. TYLENOL                            /00020001/ [Concomitant]
  7. NORVASC [Concomitant]
  8. ASPIRIN [Concomitant]
  9. ATENOLOL [Concomitant]
  10. LIPITOR [Concomitant]
  11. PLAVIX [Concomitant]
  12. LOMAX                              /00803401/ [Concomitant]
  13. GABAPENTIN [Concomitant]
  14. HYDRALAZINE [Concomitant]
  15. PREVACID [Concomitant]
  16. PRINIVIL [Concomitant]
  17. GLUCOPHAGE [Concomitant]
  18. OMEPRAZOLE [Concomitant]
  19. POTASSIUM [Concomitant]

REACTIONS (5)
  - Blindness [Unknown]
  - Loss of consciousness [Recovered/Resolved]
  - Convulsion [Unknown]
  - Renal disorder [Unknown]
  - Cataract [Unknown]
